FAERS Safety Report 10266374 (Version 1)
Quarter: 2014Q2

REPORT INFORMATION
  Report Type: Spontaneous
  Country: US (occurrence: None)
  Receive Date: 20140625
  Receipt Date: 20140625
  Transmission Date: 20141212
  Serious: Yes (Hospitalization, Other)
  Sender: FDA-Public Use
  Company Number: None

PATIENT
  Age: 52 Year
  Sex: Female
  Weight: 128.37 kg

DRUGS (1)
  1. ALEVE LIQUID GELS [Suspect]
     Indication: MUSCULOSKELETAL PAIN
     Dosage: 2 PILLS/GELS, 1 LIQUID GEL EVERY 8 HRS. ORALLY?
     Route: 048
     Dates: start: 20140514, end: 20140518

REACTIONS (8)
  - Pruritus [None]
  - Erythema [None]
  - Urticaria [None]
  - Peripheral swelling [None]
  - Toxicity to various agents [None]
  - Joint stiffness [None]
  - Movement disorder [None]
  - Pruritus [None]
